FAERS Safety Report 7368638-X (Version None)
Quarter: 2011Q1

REPORT INFORMATION
  Report Type: 
  Country: None (occurrence: None)
  Receive Date: 20110323
  Receipt Date: 20110314
  Transmission Date: 20110831
  Serious: Yes (Other)
  Sender: FDA-Public Use
  Company Number: IT-NOVOPROD-324246

PATIENT
  Age: 59 Year
  Sex: Female
  Weight: 114 kg

DRUGS (4)
  1. VICTOZA [Suspect]
     Indication: TYPE 2 DIABETES MELLITUS
     Dosage: 0.6 MG, QD
     Route: 065
     Dates: start: 20101018
  2. ALISKIREN [Suspect]
     Indication: HYPERTENSION
     Dosage: UNK
     Dates: start: 20101018
  3. VICTOZA [Suspect]
     Dosage: 1.2 MG, QD
     Route: 065
  4. VICTOZA [Suspect]
     Dosage: 1.8 MG, QD
     Route: 065

REACTIONS (1)
  - DIABETIC RETINOPATHY [None]
